FAERS Safety Report 25039620 (Version 1)
Quarter: 2025Q1

REPORT INFORMATION
  Report Type: Spontaneous
  Country: TR (occurrence: TR)
  Receive Date: 20250305
  Receipt Date: 20250305
  Transmission Date: 20250408
  Serious: Yes (Death)
  Sender: RECORDATI
  Company Number: TR-ORPHANEU-2025001334

PATIENT
  Age: 2 Year
  Sex: Male

DRUGS (11)
  1. CARBAGLU [Suspect]
     Active Substance: CARGLUMIC ACID
     Indication: Ornithine transcarbamoylase deficiency
     Dosage: 500 MG, QID
  2. CARBAGLU [Suspect]
     Active Substance: CARGLUMIC ACID
     Indication: Off label use
  3. ARGININE [Suspect]
     Active Substance: ARGININE
     Indication: Ornithine transcarbamoylase deficiency
  4. MANNITOL [Concomitant]
     Active Substance: MANNITOL
     Indication: Brain oedema
  5. LEVETIRACETAM [Concomitant]
     Active Substance: LEVETIRACETAM
     Indication: Brain oedema
  6. LEVETIRACETAM [Concomitant]
     Active Substance: LEVETIRACETAM
  7. SALINE [Concomitant]
     Active Substance: SODIUM CHLORIDE
     Indication: Brain oedema
  8. DEXTROSE [Concomitant]
     Active Substance: DEXTROSE MONOHYDRATE
     Indication: Nutritional supplementation
  9. FAT EMULSION NOS [Concomitant]
     Active Substance: EGG PHOSPHOLIPIDS\SAFFLOWER OIL\SOYBEAN OIL
     Indication: Nutritional supplementation
  10. LEVOCARNITINE [Concomitant]
     Active Substance: LEVOCARNITINE
     Indication: Nutritional supplementation
  11. SODIUM BENZOATE [Concomitant]
     Active Substance: SODIUM BENZOATE
     Indication: Nutritional supplementation

REACTIONS (3)
  - Brain oedema [Fatal]
  - Condition aggravated [Fatal]
  - Off label use [Recovered/Resolved]
